FAERS Safety Report 4552910-2 (Version None)
Quarter: 2005Q1

REPORT INFORMATION
  Report Type: 
  Country: None (occurrence: None)
  Receive Date: 20050114
  Receipt Date: 20050105
  Transmission Date: 20050727
  Serious: Yes (Death)
  Sender: FDA-Public Use
  Company Number: JP-JNJFOC-20050100640

PATIENT
  Age: 82 Year
  Sex: Male

DRUGS (5)
  1. LEVOFLOXACIN [Suspect]
     Indication: PNEUMONIA
     Route: 049
  2. TOREM [Concomitant]
     Route: 049
  3. VOSDIL [Concomitant]
     Route: 049
  4. DIGIMERCK [Concomitant]
     Route: 049
  5. HCT [Concomitant]
     Route: 049

REACTIONS (2)
  - CARDIAC DEATH [None]
  - LOSS OF CONSCIOUSNESS [None]
